FAERS Safety Report 7780396-3 (Version None)
Quarter: 2011Q3

REPORT INFORMATION
  Report Type: 
  Country: None (occurrence: None)
  Receive Date: 20110927
  Receipt Date: 19990127
  Transmission Date: 20111222
  Serious: Yes (Hospitalization, Other)
  Sender: FDA-Public Use
  Company Number: FR-ROCHE-94767

PATIENT
  Age: 37 Year
  Sex: Male

DRUGS (3)
  1. ISOTRETINOIN [Suspect]
     Indication: KERATOSIS FOLLICULAR
     Route: 048
     Dates: start: 19850101, end: 19900101
  2. TIGASON [Suspect]
     Indication: KERATOSIS FOLLICULAR
     Route: 065
     Dates: start: 19760101, end: 19850101
  3. SORIATANE [Suspect]
     Indication: KERATOSIS FOLLICULAR
     Route: 048
     Dates: start: 19940101, end: 19971201

REACTIONS (3)
  - CORONARY ARTERY DISEASE [None]
  - BLOOD TRIGLYCERIDES INCREASED [None]
  - ANGINA UNSTABLE [None]
